FAERS Safety Report 21900026 (Version 2)
Quarter: 2023Q1

REPORT INFORMATION
  Report Type: Spontaneous
  Country: US (occurrence: US)
  Receive Date: 20230123
  Receipt Date: 20230125
  Transmission Date: 20230417
  Serious: Yes (Other)
  Sender: FDA-Public Use
  Company Number: US-PFIZER INC-202300029128

PATIENT
  Age: 78 Year
  Sex: Female
  Weight: 90.72 kg

DRUGS (2)
  1. IBRANCE [Suspect]
     Active Substance: PALBOCICLIB
     Indication: Breast cancer female
     Dosage: 125 MG, CYCLIC (125MG TABLET ONE A DAY FOR 3 WEEKS ON 1 WEEK OFF)
     Dates: start: 202204
  2. LETROZOLE [Concomitant]
     Active Substance: LETROZOLE
     Indication: Oestrogenic effect
     Dosage: 2.5 MG, DAILY (AT THE SAME TIME AS IBRANCE)
     Dates: start: 202204

REACTIONS (12)
  - Thrombosis [Unknown]
  - Sinusitis [Not Recovered/Not Resolved]
  - Rhinorrhoea [Unknown]
  - Epistaxis [Unknown]
  - Swelling face [Unknown]
  - Sneezing [Unknown]
  - Herpes zoster [Unknown]
  - White blood cell count decreased [Unknown]
  - Eye disorder [Unknown]
  - Rash [Unknown]
  - Red blood cell analysis abnormal [Recovered/Resolved]
  - White blood cell count abnormal [Recovered/Resolved]
